FAERS Safety Report 16925157 (Version 1)
Quarter: 2019Q4

REPORT INFORMATION
  Report Type: Spontaneous
  Country: US (occurrence: US)
  Receive Date: 20191016
  Receipt Date: 20191016
  Transmission Date: 20200122
  Serious: No
  Sender: FDA-Public Use
  Company Number: US-IPSEN BIOPHARMACEUTICALS, INC.-2019-18735

PATIENT
  Sex: Female

DRUGS (1)
  1. SOMATULINE [Suspect]
     Active Substance: LANREOTIDE ACETATE
     Indication: CARCINOID SYNDROME
     Dosage: NOT REPORTED
     Route: 065

REACTIONS (5)
  - Blood pressure increased [Unknown]
  - Wrong technique in product usage process [Unknown]
  - Flushing [Unknown]
  - Diarrhoea [Unknown]
  - Somnolence [Unknown]
